FAERS Safety Report 9693721 (Version 2)
Quarter: 2013Q4

REPORT INFORMATION
  Report Type: Spontaneous
  Country: US (occurrence: US)
  Receive Date: 20131118
  Receipt Date: 20131223
  Transmission Date: 20140711
  Serious: Yes (Hospitalization, Other)
  Sender: FDA-Public Use
  Company Number: US-VERTEX PHARMACEUTICALS INC-2013-011001

PATIENT
  Age: 58 Year
  Sex: Male
  Weight: 85 kg

DRUGS (15)
  1. INCIVEK [Suspect]
     Indication: HEPATITIS C
     Dosage: 750 MG, TID
     Route: 048
     Dates: start: 20110822, end: 20111101
  2. PEGINTERFERON [Suspect]
     Indication: HEPATITIS C
     Dosage: 180 ?G, QW
     Route: 058
     Dates: start: 20110822
  3. RIBAVIRIN [Suspect]
     Indication: HEPATITIS C
     Dosage: 1200 MG, QD
     Dates: start: 20110822
  4. RIBAVIRIN [Suspect]
     Dosage: 1000 MG, QD
     Dates: start: 20111028
  5. DEXLANSOPRAZOLE [Concomitant]
     Dosage: 60 MG, QD
     Route: 048
  6. DIZEPAM [Concomitant]
     Dosage: 5 MG, QD, PRN
     Route: 048
  7. LORTAB [Concomitant]
     Dosage: UNK, PRN
  8. MECLIZINE [Concomitant]
     Dosage: 25 MG, TID
     Route: 048
  9. PROCHLORPERAZINE MALEATE [Concomitant]
     Dosage: 10 MG, TID
     Route: 048
  10. TRAMADOL [Concomitant]
     Dosage: 50 MG, PRN
     Route: 048
  11. GLUCOSAMINE SULFATE POTASSIUM CHLORIDE [Concomitant]
     Dosage: UNK
  12. MULTIVITAMIN [Concomitant]
  13. OMEGA-3 FATTY ACIDS W/TOCOPHEROL [Concomitant]
  14. MILK THISTLE [Concomitant]
  15. AMBIEN [Concomitant]

REACTIONS (4)
  - Pancytopenia [Recovered/Resolved]
  - Drug reaction with eosinophilia and systemic symptoms [Recovered/Resolved]
  - Purpura [Recovered/Resolved]
  - Erythrasma [Recovered/Resolved]
